FAERS Safety Report 8550915 (Version 2)
Quarter: 2012Q4

REPORT INFORMATION
  Report Type: 
  Country: AU (occurrence: AU)
  Receive Date: 20120508
  Receipt Date: 20120927
  Transmission Date: 20130627
  Serious: Yes (Hospitalization, Other)
  Sender: FDA-Public Use
  Company Number: PHHY2012AU038372

PATIENT
  Sex: Female

DRUGS (3)
  1. CLOZARIL [Suspect]
     Indication: SCHIZOPHRENIA
     Dosage: 400 mg, nocte
     Route: 048
     Dates: start: 19970317
  2. BENZYLPENICILLIN [Concomitant]
     Route: 042
  3. METRONIDAZOLE [Concomitant]
     Route: 042

REACTIONS (15)
  - Upper respiratory tract infection [Recovered/Resolved]
  - Pyrexia [Recovered/Resolved]
  - Myalgia [Recovered/Resolved]
  - Nasal congestion [Recovered/Resolved]
  - Blood pressure systolic decreased [Unknown]
  - White blood cell count increased [Unknown]
  - Supraventricular tachycardia [Unknown]
  - Malaise [Recovered/Resolved]
  - Neutrophil count increased [Unknown]
  - Cough [Recovered/Resolved]
  - Loss of consciousness [Recovered/Resolved]
  - Dyspnoea [Recovered/Resolved]
  - Viral infection [Recovered/Resolved]
  - Back pain [Recovered/Resolved]
  - Human rhinovirus test positive [Unknown]
